FAERS Safety Report 7086265-9 (Version None)
Quarter: 2010Q4

REPORT INFORMATION
  Report Type: 
  Country: None (occurrence: None)
  Receive Date: 20101105
  Receipt Date: 20101028
  Transmission Date: 20110411
  Serious: Yes (Other)
  Sender: FDA-Public Use
  Company Number: US-GENENTECH-256757

PATIENT
  Sex: Female
  Weight: 81.633 kg

DRUGS (25)
  1. XOLAIR [Suspect]
     Indication: ASTHMA
     Dosage: 150 MG, Q2W
     Route: 030
     Dates: start: 20060811
  2. ALLEGRA [Concomitant]
     Indication: RHINITIS ALLERGIC
     Dosage: 180 MG, QD
     Route: 048
     Dates: start: 20040101
  3. ASTELIN [Concomitant]
     Indication: RHINITIS ALLERGIC
     Dosage: 2 UNK, BID
     Route: 045
     Dates: start: 20040101
  4. BIAXIN [Concomitant]
     Indication: HYPERSENSITIVITY
     Dosage: 500 MG, QD
     Route: 048
     Dates: start: 20060101
  5. BIAXIN [Concomitant]
     Indication: ASTHMA
  6. FLONASE [Concomitant]
     Indication: RHINITIS ALLERGIC
     Dosage: 2 UNK, QAM
     Route: 045
     Dates: start: 20050721
  7. FORADIL [Concomitant]
     Indication: ASTHMA
     Dosage: 1 PUFF, Q12H
     Dates: start: 20060101
  8. QVAR 40 [Concomitant]
     Indication: ASTHMA
     Dosage: 5 PUFF, BID
     Dates: start: 20070830
  9. PREDNISONE [Concomitant]
     Indication: PRODUCT USED FOR UNKNOWN INDICATION
     Dosage: 40 MG, UNK
     Route: 048
     Dates: start: 20080213, end: 20080220
  10. PROAIR HFA [Concomitant]
     Indication: ASTHMA
     Dosage: 2 PUFF, PRN
     Dates: start: 20050721
  11. SPIRIVA [Concomitant]
     Indication: ASTHMA
     Dosage: 18 A?G, QD
     Dates: start: 20050901
  12. UNIPHYL [Concomitant]
     Indication: ASTHMA
     Dosage: 400 MG, QPM
     Route: 048
     Dates: start: 20060328
  13. VOSPIRE ER [Concomitant]
     Indication: PRODUCT USED FOR UNKNOWN INDICATION
     Dosage: 4 MG, TID
     Route: 048
     Dates: start: 20051101
  14. ZYFLO CR [Concomitant]
     Indication: ASTHMA
     Dosage: 600 MG, BID
     Route: 048
     Dates: start: 20090101
  15. ZYFLO CR [Concomitant]
     Indication: HYPERSENSITIVITY
  16. ZYRTEC [Concomitant]
     Indication: RHINITIS ALLERGIC
     Dosage: 10 MG, QD
     Route: 048
     Dates: start: 20060821
  17. SINGULAIR [Concomitant]
     Indication: ASTHMA
     Dosage: 10 MG, QD
     Route: 048
     Dates: start: 20051222
  18. IMMUNOTHERAPY (AEROALLERGENS + DUST MITE) [Concomitant]
     Indication: PRODUCT USED FOR UNKNOWN INDICATION
     Dosage: UNK
     Dates: start: 20050901
  19. THEOPHYLLINE [Concomitant]
     Indication: ASTHMA
     Dosage: 2 TABLET, QD
     Route: 048
     Dates: start: 20050101
  20. ADVAIR DISKUS 100/50 [Concomitant]
     Indication: PRODUCT USED FOR UNKNOWN INDICATION
  21. ALBUTEROL [Concomitant]
     Indication: PRODUCT USED FOR UNKNOWN INDICATION
  22. PROAIR HFA [Concomitant]
     Dosage: 2 PUFF, BID
     Dates: start: 20050721
  23. ALVESCO [Concomitant]
     Indication: PRODUCT USED FOR UNKNOWN INDICATION
     Dosage: 160 A?G, BID
     Dates: start: 20090101
  24. XOPENEX [Concomitant]
     Indication: PRODUCT USED FOR UNKNOWN INDICATION
     Dosage: 1.25 MG, BID
     Dates: start: 20080101
  25. FLUTICASONE PROPIONATE [Concomitant]
     Indication: HYPERSENSITIVITY
     Dosage: UNK
     Dates: start: 20040101

REACTIONS (4)
  - ANAPHYLACTIC REACTION [None]
  - CHEST DISCOMFORT [None]
  - RASH [None]
  - URTICARIA [None]
